FAERS Safety Report 5779757-3 (Version None)
Quarter: 2008Q2

REPORT INFORMATION
  Report Type: 
  Country: None (occurrence: None)
  Receive Date: 20080617
  Receipt Date: 20080610
  Transmission Date: 20081010
  Serious: Yes (Life-Threatening)
  Sender: FDA-Public Use
  Company Number: 028864

PATIENT
  Age: 45 Year
  Sex: Female

DRUGS (2)
  1. TREXALL [Suspect]
     Dates: end: 20070601
  2. ENBREL [Suspect]
     Indication: RHEUMATOID ARTHRITIS
     Dosage: 50 MG, 1/WEEK, SUBCUTANEOUS
     Route: 058
     Dates: start: 20050101

REACTIONS (1)
  - CHRONIC MYELOID LEUKAEMIA [None]
